FAERS Safety Report 15277754 (Version 1)
Quarter: 2018Q3

REPORT INFORMATION
  Report Type: Spontaneous
  Country: US (occurrence: US)
  Receive Date: 20180814
  Receipt Date: 20180814
  Transmission Date: 20181010
  Serious: No
  Sender: FDA-Public Use
  Company Number: US-DUCHESNAY INC.-2053730

PATIENT
  Age: 67 Year
  Sex: Female

DRUGS (3)
  1. OSPHENA [Suspect]
     Active Substance: OSPEMIFENE
     Indication: DYSPAREUNIA
     Route: 048
     Dates: start: 20180505, end: 20180804
  2. VITAMINS [Concomitant]
     Active Substance: VITAMINS
  3. BLOOD PRESSURE UNSPECIFIED MEDICATION [Concomitant]

REACTIONS (5)
  - Headache [Recovering/Resolving]
  - Fatigue [Recovered/Resolved]
  - Hyperhidrosis [Recovering/Resolving]
  - Nodule [Recovered/Resolved]
  - Dizziness [Recovering/Resolving]

NARRATIVE: CASE EVENT DATE: 20180512
